FAERS Safety Report 10189920 (Version 1)
Quarter: 2014Q2

REPORT INFORMATION
  Report Type: Spontaneous
  Country: US (occurrence: US)
  Receive Date: 20140522
  Receipt Date: 20140522
  Transmission Date: 20141212
  Serious: Yes (Other)
  Sender: FDA-Public Use
  Company Number: US-SANOFI-AVENTIS-2013SA083512

PATIENT
  Age: 54 Year
  Sex: Female
  Weight: 127 kg

DRUGS (3)
  1. LANTUS SOLOSTAR [Suspect]
     Indication: DIABETES MELLITUS
     Dosage: DOSE:70 UNIT(S)
     Route: 051
     Dates: start: 20130815
  2. SOLOSTAR [Concomitant]
     Indication: DIABETES MELLITUS
  3. METFORMIN [Concomitant]

REACTIONS (2)
  - Hypoglycaemic unconsciousness [Unknown]
  - Blood glucose increased [Unknown]
